FAERS Safety Report 18589664 (Version 1)
Quarter: 2020Q4

REPORT INFORMATION
  Report Type: Spontaneous
  Country: US (occurrence: US)
  Receive Date: 20201204
  Receipt Date: 20201204
  Transmission Date: 20210114
  Serious: Yes (Hospitalization)
  Sender: FDA-Public Use
  Company Number: None

PATIENT
  Age: 41 Year
  Sex: Female

DRUGS (1)
  1. CIMZIA [Suspect]
     Active Substance: CERTOLIZUMAB PEGOL
     Indication: RHEUMATOID ARTHRITIS
     Dosage: ?          OTHER FREQUENCY:WEEK 0, WEEK 2 AND;?
     Route: 058
     Dates: start: 20201105

REACTIONS (3)
  - Pain in extremity [None]
  - Product dose omission in error [None]
  - Memory impairment [None]

NARRATIVE: CASE EVENT DATE: 20201203
